FAERS Safety Report 4671060-8 (Version None)
Quarter: 2005Q2

REPORT INFORMATION
  Report Type: 
  Country: None (occurrence: None)
  Receive Date: 20050523
  Receipt Date: 20050512
  Transmission Date: 20051028
  Serious: Yes (Other)
  Sender: FDA-Public Use
  Company Number: 2004S1000164

PATIENT
  Age: 17 Year
  Sex: Female

DRUGS (1)
  1. ACITRETIN (ACITRETIN) [Suspect]
     Indication: PSORIASIS
     Dosage: PO
     Route: 048
     Dates: end: 20030501

REACTIONS (3)
  - CAESAREAN SECTION [None]
  - DRUG EXPOSURE DURING PREGNANCY [None]
  - PREGNANCY [None]
